FAERS Safety Report 4999060-9 (Version None)
Quarter: 2006Q2

REPORT INFORMATION
  Report Type: 
  Country: None (occurrence: None)
  Receive Date: 20060509
  Receipt Date: 20060421
  Transmission Date: 20061013
  Serious: Yes (Hospitalization)
  Sender: FDA-Public Use
  Company Number: US200604003609

PATIENT
  Age: 47 Year
  Sex: Female

DRUGS (8)
  1. FLUOXETINE HCL [Suspect]
     Dosage: 10 MG, ORAL
     Route: 048
  2. OLANZAPINE [Suspect]
     Dosage: 10 MG, ORAL
     Route: 048
  3. AMITRIPTYLINE (AMITRIPTYLINE) [Concomitant]
  4. LORAZEPAM [Concomitant]
  5. VENLAFAXINE HCL [Concomitant]
  6. METOPROLOL SUCCINATE [Concomitant]
  7. ACETAMINOPHEN W/HYDROCODONE (HYDROCODONE, PARACETAMOL) [Concomitant]
  8. PANTOPRAZOLE SODIUM [Concomitant]

REACTIONS (10)
  - ALANINE AMINOTRANSFERASE INCREASED [None]
  - AREFLEXIA [None]
  - ASPARTATE AMINOTRANSFERASE INCREASED [None]
  - BLOOD PH INCREASED [None]
  - HYPOTENSION [None]
  - ISCHAEMIC HEPATITIS [None]
  - LOSS OF CONSCIOUSNESS [None]
  - OVERDOSE [None]
  - RHABDOMYOLYSIS [None]
  - SINUS BRADYCARDIA [None]
